FAERS Safety Report 19230734 (Version 1)
Quarter: 2021Q2

REPORT INFORMATION
  Report Type: Spontaneous
  Country: US (occurrence: US)
  Receive Date: 20210507
  Receipt Date: 20210507
  Transmission Date: 20210717
  Serious: Yes (Hospitalization)
  Sender: FDA-Public Use
  Company Number: None

PATIENT
  Sex: Male

DRUGS (6)
  1. CARVEDIOL, COLCHICINE, FASTCLIX [Concomitant]
  2. TAMSULISON [Concomitant]
  3. XELJANZ [Suspect]
     Active Substance: TOFACITINIB CITRATE
     Indication: RHEUMATOID ARTHRITIS
     Route: 048
     Dates: start: 20191115
  4. FUROSEMIDE, GABAPENTIN, HUMALOG, [Concomitant]
  5. HYDRALIZINE, LANTUS, METOLAZONE, NITROG;UCERM [Concomitant]
  6. ACCU?CHECK, BD PEN NEEDLE, BRILNTA [Concomitant]

REACTIONS (2)
  - Myocardial necrosis marker increased [None]
  - Rash [None]
